FAERS Safety Report 6505621-8 (Version None)
Quarter: 2009Q4

REPORT INFORMATION
  Report Type: 
  Country: None (occurrence: None)
  Receive Date: 20091218
  Receipt Date: 20091209
  Transmission Date: 20100525
  Serious: Yes (Death, Hospitalization)
  Sender: FDA-Public Use
  Company Number: US-ABBOTT-09P-163-0604434-00

PATIENT
  Sex: Female

DRUGS (2)
  1. HUMIRA [Suspect]
     Indication: INTERSTITIAL LUNG DISEASE
     Dosage: UNKNOWN
     Route: 058
     Dates: start: 20091006, end: 20091021
  2. HUMIRA [Suspect]
     Indication: RHEUMATOID ARTHRITIS
     Dates: start: 20091023, end: 20091106

REACTIONS (3)
  - INTERSTITIAL LUNG DISEASE [None]
  - PNEUMONITIS [None]
  - PULMONARY FIBROSIS [None]
